FAERS Safety Report 24965235 (Version 1)
Quarter: 2025Q1

REPORT INFORMATION
  Report Type: Spontaneous
  Country: CZ (occurrence: CZ)
  Receive Date: 20250213
  Receipt Date: 20250213
  Transmission Date: 20250408
  Serious: Yes (Other)
  Sender: AMGEN
  Company Number: CZ-AMGEN-CZESP2025024526

PATIENT
  Age: 75 Year
  Sex: Female

DRUGS (3)
  1. PROLIA [Suspect]
     Active Substance: DENOSUMAB
     Indication: Osteoporosis
     Route: 065
     Dates: start: 2022
  2. CALTRATE [Concomitant]
     Active Substance: CALCIUM CARBONATE
  3. VITAMIN D [Concomitant]
     Active Substance: VITAMIN D NOS

REACTIONS (6)
  - Device loosening [Unknown]
  - Bone loss [Unknown]
  - Pain in jaw [Unknown]
  - Pain in extremity [Unknown]
  - Burning sensation [Unknown]
  - Arthralgia [Unknown]

NARRATIVE: CASE EVENT DATE: 20220101
